FAERS Safety Report 6822326-4 (Version None)
Quarter: 2010Q3

REPORT INFORMATION
  Report Type: 
  Country: None (occurrence: None)
  Receive Date: 20100708
  Receipt Date: 20100623
  Transmission Date: 20110219
  Serious: No
  Sender: FDA-Public Use
  Company Number: US-B.I. PHARMACEUTICALS,INC./RIDGEFIELD-2010-BP-06512BP

PATIENT
  Age: 61 Year
  Sex: Male

DRUGS (4)
  1. CATAPRES-TTS-1 [Suspect]
     Indication: HYPERTENSION
     Dosage: 0.2 MG
     Route: 061
     Dates: start: 20070101, end: 20100607
  2. AMLODIPINE [Concomitant]
     Indication: HYPERTENSION
  3. HYZAAR [Concomitant]
  4. PROTONIX [Concomitant]

REACTIONS (5)
  - BLOOD PRESSURE INCREASED [None]
  - FLUSHING [None]
  - HEADACHE [None]
  - HYPERTENSION [None]
  - MALAISE [None]
